FAERS Safety Report 15878072 (Version 1)
Quarter: 2019Q1

REPORT INFORMATION
  Report Type: Report from Study
  Country: IT (occurrence: IT)
  Receive Date: 20190128
  Receipt Date: 20190128
  Transmission Date: 20190417
  Serious: Yes (Other)
  Sender: FDA-Public Use
  Company Number: IT-ACCORD-103417

PATIENT
  Age: 43 Year
  Sex: Female

DRUGS (3)
  1. INTERLEUKINS [Suspect]
     Active Substance: INTERLEUKIN NOS
     Indication: BLADDER CANCER
     Dosage: 18 MUI/SQM ON DAYS 4-6 AND 18-20. THE CYCLE WAS REPEATED ON DAY 29
     Route: 042
  2. CYCLOPHOSPHAMIDE/CYCLOPHOSPHAMIDE MONOHYDRATE [Suspect]
     Active Substance: CYCLOPHOSPHAMIDE
     Indication: BLADDER CANCER
     Dosage: ON DAY 1, REPEATED ON DAY 29
     Route: 042
  3. FLUOROURACIL. [Suspect]
     Active Substance: FLUOROURACIL
     Indication: BLADDER CANCER
     Dosage: AT DAY 1, REPEATED ON DAY 29
     Route: 040

REACTIONS (5)
  - Proteinuria [Recovered/Resolved]
  - Influenza like illness [Recovered/Resolved]
  - Hypotension [Recovered/Resolved]
  - Off label use [Unknown]
  - Pyrexia [Recovered/Resolved]
